FAERS Safety Report 7512466-9 (Version None)
Quarter: 2011Q2

REPORT INFORMATION
  Report Type: 
  Country: None (occurrence: None)
  Receive Date: 20110531
  Receipt Date: 20110523
  Transmission Date: 20111010
  Serious: Yes (Death, Hospitalization)
  Sender: FDA-Public Use
  Company Number: JP-ROCHE-773481

PATIENT
  Age: 64 Year
  Sex: Female

DRUGS (2)
  1. GANCICLOVIR SODIUM [Suspect]
     Indication: CYTOMEGALOVIRUS INFECTION
     Dosage: INTERRUPTED
     Route: 041
     Dates: start: 20110418, end: 20110421
  2. VANCOMYCIN [Suspect]
     Route: 051
     Dates: start: 20110414, end: 20110421

REACTIONS (1)
  - RENAL IMPAIRMENT [None]
